FAERS Safety Report 5604585-9 (Version None)
Quarter: 2008Q1

REPORT INFORMATION
  Report Type: 
  Country: None (occurrence: None)
  Receive Date: 20080128
  Receipt Date: 20080123
  Transmission Date: 20080703
  Serious: Yes (Death)
  Sender: FDA-Public Use
  Company Number: JP-ASTRAZENECA-2007AP07239

PATIENT
  Age: 73 Year
  Sex: Male
  Weight: 62 kg

DRUGS (11)
  1. IRESSA [Suspect]
     Indication: LUNG NEOPLASM MALIGNANT
     Route: 048
     Dates: start: 20070604, end: 20070620
  2. ALLOID G [Concomitant]
     Dosage: DOSE UNKNOWN
     Route: 048
  3. TAKEPRON [Concomitant]
     Dosage: DOSE UNKNOWN
     Route: 048
  4. TEGRETOL [Concomitant]
     Dosage: DOSE UNKNOWN
     Route: 048
  5. TRYPTANOL [Concomitant]
     Dosage: DOSE UNKNOWN
     Route: 065
  6. HALFDIGOXIN [Concomitant]
     Dosage: DOSE UNKNOWN
     Route: 048
  7. MUCOSTA [Concomitant]
     Dosage: DOSE UNKNOWN
     Route: 048
  8. LOXONIN [Concomitant]
     Dosage: DOSE UNKNOWN
     Route: 048
  9. VASOLAN [Concomitant]
     Dosage: DOSE UNKNOWN
     Route: 065
  10. VOLTAREN [Concomitant]
     Dosage: DOSE UNKNOWN
     Route: 054
  11. LEPETAN [Concomitant]
     Dosage: DOSE UNKNOWN
     Route: 054

REACTIONS (2)
  - INTERSTITIAL LUNG DISEASE [None]
  - RESPIRATORY FAILURE [None]
